FAERS Safety Report 7387886-6 (Version None)
Quarter: 2011Q1

REPORT INFORMATION
  Report Type: 
  Country: None (occurrence: None)
  Receive Date: 20110331
  Receipt Date: 20110317
  Transmission Date: 20110831
  Serious: Yes (Hospitalization)
  Sender: FDA-Public Use
  Company Number: GB-MYLANLABS-2011S1005827

PATIENT
  Age: 53 Year
  Sex: Female

DRUGS (2)
  1. WARFARIN SODIUM [Suspect]
     Indication: ANTICOAGULANT THERAPY
  2. HEPARIN SODIUM [Concomitant]
     Indication: ANTICOAGULANT THERAPY
     Route: 058

REACTIONS (2)
  - GASTROINTESTINAL HAEMORRHAGE [None]
  - SMALL INTESTINAL OBSTRUCTION [None]
